FAERS Safety Report 14589630 (Version 3)
Quarter: 2025Q1

REPORT INFORMATION
  Report Type: Report from Study
  Country: US (occurrence: US)
  Receive Date: 20180302
  Receipt Date: 20250317
  Transmission Date: 20250408
  Serious: Yes (Hospitalization, Other)
  Sender: TAKEDA
  Company Number: US-TAKEDA-2018TUS004917

PATIENT
  Sex: Female

DRUGS (5)
  1. VEDOLIZUMAB [Suspect]
     Active Substance: VEDOLIZUMAB
     Indication: Colitis ulcerative
  2. VEDOLIZUMAB [Suspect]
     Active Substance: VEDOLIZUMAB
     Dosage: 300 MILLIGRAM, Q4WEEKS
  3. VEDOLIZUMAB [Suspect]
     Active Substance: VEDOLIZUMAB
     Indication: Colitis ulcerative
  4. VEDOLIZUMAB [Suspect]
     Active Substance: VEDOLIZUMAB
  5. APRISO [Concomitant]
     Active Substance: MESALAMINE

REACTIONS (8)
  - Colitis ulcerative [Unknown]
  - Dysplasia [Unknown]
  - Papilloma viral infection [Unknown]
  - Product dose omission issue [Not Recovered/Not Resolved]
  - Drug level below therapeutic [Unknown]
  - Treatment failure [Unknown]
  - Rhinorrhoea [Recovered/Resolved]
  - Arthralgia [Recovered/Resolved]

NARRATIVE: CASE EVENT DATE: 20170101
